FAERS Safety Report 7514630-1 (Version None)
Quarter: 2011Q2

REPORT INFORMATION
  Report Type: 
  Country: None (occurrence: None)
  Receive Date: 20110422
  Receipt Date: 20101129
  Transmission Date: 20111010
  Serious: Yes (Life-Threatening, Disabling, Other)
  Sender: FDA-Public Use
  Company Number: APP201001078

PATIENT
  Sex: Male

DRUGS (4)
  1. HEPARIN SODIUM [Suspect]
     Indication: INJURY
     Dosage: SEE IMAGE, INTRAVENOUS
     Route: 042
     Dates: start: 20091123
  2. HEPARIN [Suspect]
     Indication: INJURY
     Dosage: SEE IMAGE, INTRAVENOUS
     Route: 042
     Dates: start: 20081123
  3. HEPARIN [Suspect]
     Indication: INJURY
     Dosage: SEE IMAGE, INTRAVENOUS
     Route: 042
     Dates: start: 20081201
  4. HEPARIN [Suspect]
     Indication: INJURY
     Dosage: SEE IMAGE, INTRAVENOUS
     Route: 042
     Dates: start: 20081201

REACTIONS (6)
  - GANGRENE [None]
  - EXTREMITY NECROSIS [None]
  - GRAFT THROMBOSIS [None]
  - THROMBOSIS [None]
  - CYANOSIS [None]
  - HEPARIN-INDUCED THROMBOCYTOPENIA [None]
